FAERS Safety Report 5200219-6 (Version None)
Quarter: 2006Q4

REPORT INFORMATION
  Report Type: 
  Country: None (occurrence: None)
  Receive Date: 20061016
  Receipt Date: 20060713
  Transmission Date: 20070319
  Serious: No
  Sender: FDA-Public Use
  Company Number: 2006SP002685

PATIENT
  Age: 59 Year
  Sex: Female
  Weight: 113.3993 kg

DRUGS (15)
  1. LUNESTA [Suspect]
     Indication: INSOMNIA
     Dosage: 2 MG;HS;ORAL; 3 MG;PRN;ORAL
     Route: 048
     Dates: start: 20060101, end: 20060101
  2. LUNESTA [Suspect]
     Indication: INSOMNIA
     Dosage: 2 MG;HS;ORAL; 3 MG;PRN;ORAL
     Route: 048
     Dates: start: 20060711
  3. XANAX [Concomitant]
  4. PROPOXYPHENE HYDROCHLORIDE [Concomitant]
  5. ZOLPIDEM TARTRATE [Concomitant]
  6. GLYBURIDE [Concomitant]
  7. METOCLOPRAMIDE [Concomitant]
  8. METOPROLOL SUCCINATE [Concomitant]
  9. WARFARIN SODIUM [Concomitant]
  10. DIGITEK [Concomitant]
  11. SIMVASTATIN [Concomitant]
  12. GLUCOPHAGE [Concomitant]
  13. PIOGLITAZONE HCL [Concomitant]
  14. PREVACID [Concomitant]
  15. VITAMIN CAP [Concomitant]

REACTIONS (1)
  - INITIAL INSOMNIA [None]
